FAERS Safety Report 20659942 (Version 1)
Quarter: 2022Q1

REPORT INFORMATION
  Report Type: Spontaneous
  Country: CO (occurrence: CO)
  Receive Date: 20220331
  Receipt Date: 20220331
  Transmission Date: 20220423
  Serious: Yes (Other)
  Sender: FDA-Public Use
  Company Number: CO-AMGEN-COLSP2022052776

PATIENT
  Age: 63 Year
  Sex: Female
  Weight: 62 kg

DRUGS (6)
  1. MVASI [Suspect]
     Active Substance: BEVACIZUMAB-AWWB
     Indication: Colon cancer stage IV
     Dosage: 340 MILLIGRAM, QD
     Route: 042
     Dates: start: 20200721
  2. PEGFILGRASTIM [Suspect]
     Active Substance: PEGFILGRASTIM
     Indication: Product used for unknown indication
     Dosage: UNK
     Route: 065
  3. FLUOROURACIL [Concomitant]
     Active Substance: FLUOROURACIL
     Indication: Colon cancer stage IV
     Dosage: 4320 MILLIGRAM, QD
     Route: 042
     Dates: start: 20200721
  4. LEUCOVORIN CALCIUM [Concomitant]
     Active Substance: LEUCOVORIN CALCIUM
     Indication: Colon cancer stage IV
     Dosage: 720 MILLIGRAM, QD
     Route: 042
     Dates: start: 20200721
  5. DEXAMETHASONE PHOSPHATE [Concomitant]
     Active Substance: DEXAMETHASONE PHOSPHATE
     Indication: Colon cancer stage IV
     Dosage: 12 MILLIGRAM, QD
     Route: 042
     Dates: start: 20200721
  6. ONDANSETRON [Concomitant]
     Active Substance: ONDANSETRON
     Indication: Colon cancer stage IV
     Dosage: 8 MILLIGRAM, QD
     Route: 042
     Dates: start: 20200721

REACTIONS (4)
  - Neurotoxicity [Not Recovered/Not Resolved]
  - Ill-defined disorder [Unknown]
  - Asthenia [Not Recovered/Not Resolved]
  - Arthralgia [Not Recovered/Not Resolved]

NARRATIVE: CASE EVENT DATE: 20220314
